FAERS Safety Report 17715051 (Version 3)
Quarter: 2021Q2

REPORT INFORMATION
  Report Type: Spontaneous
  Country: US (occurrence: US)
  Receive Date: 20200427
  Receipt Date: 20210429
  Transmission Date: 20210716
  Serious: Yes (Disabling, Other)
  Sender: FDA-Public Use
  Company Number: US-ASTRAZENECA-2020SE54069

PATIENT
  Age: 592 Month
  Sex: Male

DRUGS (31)
  1. PRILOSEC [Suspect]
     Active Substance: OMEPRAZOLE MAGNESIUM
     Indication: GASTROOESOPHAGEAL REFLUX DISEASE
     Route: 048
     Dates: start: 199501, end: 201707
  2. PREVACID [Suspect]
     Active Substance: LANSOPRAZOLE
     Indication: GASTROOESOPHAGEAL REFLUX DISEASE
     Route: 065
     Dates: start: 199501, end: 201707
  3. ASPIRIN. [Concomitant]
     Active Substance: ASPIRIN
     Dates: start: 2000
  4. RANITIDINE. [Concomitant]
     Active Substance: RANITIDINE
     Dates: start: 2019
  5. LASIX [Concomitant]
     Active Substance: FUROSEMIDE
  6. PRILOSEC [Suspect]
     Active Substance: OMEPRAZOLE MAGNESIUM
     Indication: GASTROOESOPHAGEAL REFLUX DISEASE
     Dosage: GENERIC, DAILY
     Route: 065
     Dates: start: 2008
  7. PRILOSEC [Suspect]
     Active Substance: OMEPRAZOLE MAGNESIUM
     Indication: GASTROOESOPHAGEAL REFLUX DISEASE
     Dosage: GENERIC
     Route: 048
     Dates: start: 20120807
  8. CARVEDILOL. [Concomitant]
     Active Substance: CARVEDILOL
     Dates: start: 20170125
  9. COREG [Concomitant]
     Active Substance: CARVEDILOL
     Dates: start: 20120807
  10. HYDRALAZINE [Concomitant]
     Active Substance: HYDRALAZINE HYDROCHLORIDE
     Dates: start: 20120824
  11. NIFEDIPINE. [Concomitant]
     Active Substance: NIFEDIPINE
     Dates: start: 20120824
  12. RENVELA [Concomitant]
     Active Substance: SEVELAMER CARBONATE
     Dates: start: 20120824
  13. COLACE [Concomitant]
     Active Substance: DOCUSATE SODIUM
  14. PREVACID [Suspect]
     Active Substance: LANSOPRAZOLE
     Indication: GASTROOESOPHAGEAL REFLUX DISEASE
     Dosage: DAILY
     Route: 065
     Dates: start: 1995, end: 2008
  15. LANTUS [Concomitant]
     Active Substance: INSULIN GLARGINE
     Dates: start: 20120807
  16. SENSIPAR [Concomitant]
     Active Substance: CINACALCET HYDROCHLORIDE
  17. VITAMIN D2 [Concomitant]
     Active Substance: ERGOCALCIFEROL
     Dates: start: 20121210
  18. LOSARTAN. [Concomitant]
     Active Substance: LOSARTAN
     Dates: start: 20120807
  19. GEMFIBROZIL. [Concomitant]
     Active Substance: GEMFIBROZIL
  20. HYTRIN [Concomitant]
     Active Substance: TERAZOSIN HYDROCHLORIDE
  21. ALLOPURINOL. [Concomitant]
     Active Substance: ALLOPURINOL
     Dates: start: 20120824
  22. GENTAMICIN. [Concomitant]
     Active Substance: GENTAMICIN
     Indication: ANTIBIOTIC LEVEL
     Dates: start: 2012
  23. LEVOTHYROXINE. [Concomitant]
     Active Substance: LEVOTHYROXINE
     Dates: start: 20120722
  24. CALCITRIOL. [Concomitant]
     Active Substance: CALCITRIOL
  25. NEURONTIN [Concomitant]
     Active Substance: GABAPENTIN
  26. PRILOSEC [Suspect]
     Active Substance: OMEPRAZOLE MAGNESIUM
     Indication: GASTROOESOPHAGEAL REFLUX DISEASE
     Dosage: GENERIC
     Route: 065
     Dates: start: 2012
  27. TRICOR [Concomitant]
     Active Substance: FENOFIBRATE
     Dates: start: 20120807
  28. CLONIDINE. [Concomitant]
     Active Substance: CLONIDINE
     Dates: start: 20120824
  29. PRILOSEC [Suspect]
     Active Substance: OMEPRAZOLE MAGNESIUM
     Indication: GASTROOESOPHAGEAL REFLUX DISEASE
     Route: 048
     Dates: start: 1995, end: 2017
  30. LOVAZA [Concomitant]
     Active Substance: OMEGA-3-ACID ETHYL ESTERS
     Dates: start: 20121210
  31. K?DUR [Concomitant]
     Active Substance: POTASSIUM CHLORIDE
     Dates: start: 20120807

REACTIONS (6)
  - Renal failure [Not Recovered/Not Resolved]
  - Nephrogenic anaemia [Unknown]
  - Chronic kidney disease-mineral and bone disorder [Unknown]
  - Hyperparathyroidism secondary [Unknown]
  - Chronic kidney disease [Not Recovered/Not Resolved]
  - End stage renal disease [Not Recovered/Not Resolved]

NARRATIVE: CASE EVENT DATE: 200502
